FAERS Safety Report 5284694-7 (Version None)
Quarter: 2007Q1

REPORT INFORMATION
  Report Type: 
  Country: None (occurrence: None)
  Receive Date: 20061222
  Receipt Date: 20060223
  Transmission Date: 20070707
  Serious: Yes (Other)
  Sender: FDA-Public Use
  Company Number: PHEH2004US07573

PATIENT
  Sex: Female

DRUGS (8)
  1. VIVELLE [Suspect]
     Indication: MENOPAUSAL SYMPTOMS
  2. PROMETRIUM [Suspect]
     Indication: MENOPAUSAL SYMPTOMS
  3. ESTRACE [Suspect]
     Indication: MENOPAUSAL SYMPTOMS
  4. CLIMARA [Suspect]
     Indication: MENOPAUSAL SYMPTOMS
  5. PREMARIN [Suspect]
  6. PROVERA [Suspect]
  7. ESTRATAB [Suspect]
  8. PREMPRO [Suspect]

REACTIONS (2)
  - BREAST CANCER [None]
  - MASTECTOMY [None]
